FAERS Safety Report 8553042-9 (Version None)
Quarter: 2012Q3

REPORT INFORMATION
  Report Type: 
  Country: None (occurrence: None)
  Receive Date: 20120731
  Receipt Date: 20120720
  Transmission Date: 20120928
  Serious: Yes (Other)
  Sender: FDA-Public Use
  Company Number: JP-SANOFI-AVENTIS-2012SA036693

PATIENT
  Age: 41 Year
  Sex: Female
  Weight: 37.6 kg

DRUGS (6)
  1. LASIX [Suspect]
     Indication: DRUG ABUSE
     Route: 048
  2. LIPITOR [Concomitant]
     Route: 048
  3. MAGLAX [Concomitant]
     Route: 048
     Dates: start: 20100601
  4. ZOLPIDEM [Concomitant]
     Route: 048
  5. SELBEX [Concomitant]
     Route: 048
  6. SLOW-K [Concomitant]
     Route: 048

REACTIONS (5)
  - BLOOD POTASSIUM DECREASED [None]
  - BLOOD MAGNESIUM DECREASED [None]
  - PSEUDO-BARTTER SYNDROME [None]
  - ELECTROLYTE IMBALANCE [None]
  - BLOOD CALCIUM INCREASED [None]
